FAERS Safety Report 20511916 (Version 2)
Quarter: 2022Q1

REPORT INFORMATION
  Report Type: Spontaneous
  Country: JP (occurrence: JP)
  Receive Date: 20220224
  Receipt Date: 20220318
  Transmission Date: 20220423
  Serious: No
  Sender: FDA-Public Use
  Company Number: JP-GLAXOSMITHKLINE-JP2022JPN029968

PATIENT
  Sex: Female
  Weight: 51 kg

DRUGS (6)
  1. SOTROVIMAB [Suspect]
     Active Substance: SOTROVIMAB
     Indication: COVID-19
     Dosage: UNK
     Dates: start: 20220216
  2. METOCLOPRAMIDE [Suspect]
     Active Substance: METOCLOPRAMIDE
     Indication: Nausea
     Dosage: 5 MG PER DOSE
     Route: 048
     Dates: start: 20210821
  3. AMOXICILLIN [Suspect]
     Active Substance: AMOXICILLIN
     Indication: Cystitis bacterial
     Dosage: 1000 MG DAILY
     Route: 048
     Dates: start: 20211127, end: 20211130
  4. MAGNESIUM OXIDE [Suspect]
     Active Substance: MAGNESIUM OXIDE
     Indication: Constipation prophylaxis
     Dosage: 990 MG DAILY
     Route: 048
     Dates: start: 20210823
  5. FEXOFENADINE [Suspect]
     Active Substance: FEXOFENADINE HYDROCHLORIDE
     Indication: Hypersensitivity
     Dosage: 1000 MG DAILY
     Route: 048
     Dates: start: 20211127
  6. FERROUS CITRATE [Suspect]
     Active Substance: FERROUS CITRATE
     Indication: Anaemia
     Dosage: 100 MG DAILY
     Route: 048
     Dates: start: 20220226

REACTIONS (1)
  - Exposure during pregnancy [Unknown]
